FAERS Safety Report 15784480 (Version 1)
Quarter: 2019Q1

REPORT INFORMATION
  Report Type: Report from Study
  Country: IT (occurrence: IT)
  Receive Date: 20190103
  Receipt Date: 20190103
  Transmission Date: 20190417
  Serious: Yes (Other)
  Sender: FDA-Public Use
  Company Number: IT-ACCORD-099563

PATIENT
  Age: 43 Year
  Sex: Female

DRUGS (5)
  1. DELORAZEPAM [Concomitant]
     Active Substance: DELORAZEPAM
     Dosage: 10GTT / DAY
  2. ARIPIPRAZOLE. [Concomitant]
     Active Substance: ARIPIPRAZOLE
     Dosage: 10 MG / DAY
  3. SERENASE [Concomitant]
     Dosage: 4MG / DAY
  4. QUETIAPINE. [Suspect]
     Active Substance: QUETIAPINE
     Indication: DEPRESSION
     Route: 048
     Dates: start: 20180409, end: 20180409
  5. AKINETON [Concomitant]
     Active Substance: BIPERIDEN HYDROCHLORIDE
     Dosage: 4MG / DAY

REACTIONS (1)
  - Drug abuse [Unknown]

NARRATIVE: CASE EVENT DATE: 20180409
